FAERS Safety Report 25003224 (Version 1)
Quarter: 2025Q1

REPORT INFORMATION
  Report Type: Report from Study
  Country: US (occurrence: US)
  Receive Date: 20250224
  Receipt Date: 20250224
  Transmission Date: 20250408
  Serious: Yes (Other)
  Sender: ALEXION PHARMACEUTICALS
  Company Number: US-AstraZeneca-CH-00809864A

PATIENT

DRUGS (3)
  1. BENRALIZUMAB [Suspect]
     Active Substance: BENRALIZUMAB
     Route: 065
  2. MODAFINIL [Concomitant]
     Active Substance: MODAFINIL
     Route: 065
  3. RYBELSUS [Concomitant]
     Active Substance: SEMAGLUTIDE
     Route: 065

REACTIONS (8)
  - Musculoskeletal discomfort [Unknown]
  - Neck pain [Unknown]
  - Lumbar vertebral fracture [Unknown]
  - Headache [Unknown]
  - Blood glucose decreased [Unknown]
  - Dry mouth [Unknown]
  - Diabetes mellitus [Unknown]
  - Accident [Unknown]
